FAERS Safety Report 5067930-1 (Version None)
Quarter: 2006Q3

REPORT INFORMATION
  Report Type: 
  Country: None (occurrence: None)
  Receive Date: 20060802
  Receipt Date: 20060721
  Transmission Date: 20061208
  Serious: Yes (Death, Hospitalization)
  Sender: FDA-Public Use
  Company Number: GB-JNJFOC-20031101463

PATIENT
  Age: 64 Year
  Sex: Male
  Weight: 79.4 kg

DRUGS (7)
  1. REMICADE [Suspect]
     Indication: RHEUMATOID ARTHRITIS
     Route: 042
  2. LANSOPRAZOLE [Concomitant]
     Indication: PROPHYLAXIS
  3. VIOXX [Concomitant]
     Indication: RHEUMATOID ARTHRITIS
     Route: 048
  4. GLICLAZIDE [Concomitant]
     Indication: DIABETES MELLITUS
     Route: 048
  5. METHOTREXATE [Concomitant]
     Indication: RHEUMATOID ARTHRITIS
     Route: 048
  6. FOLIC ACID [Concomitant]
     Indication: RHEUMATOID ARTHRITIS
     Route: 048
  7. TRAMADOL HCL [Concomitant]
     Route: 048

REACTIONS (3)
  - DEEP VEIN THROMBOSIS [None]
  - DYSPNOEA [None]
  - PULMONARY EMBOLISM [None]
